FAERS Safety Report 20850707 (Version 1)
Quarter: 2022Q2

REPORT INFORMATION
  Report Type: Spontaneous
  Country: US (occurrence: US)
  Receive Date: 20220519
  Receipt Date: 20220519
  Transmission Date: 20220721
  Serious: No
  Sender: FDA-Public Use
  Company Number: US-GLAUKOS-AVE-2021-0251-AE

PATIENT
  Age: 25 Year
  Sex: Female

DRUGS (2)
  1. RIBOFLAVIN 5^-PHOSPHATE SODIUM [Suspect]
     Active Substance: RIBOFLAVIN 5^-PHOSPHATE SODIUM
     Indication: Keratoconus
     Dosage: LEFT EYE
     Route: 047
     Dates: start: 202105, end: 202105
  2. RIBOFLAVIN 5^-PHOSPHATE SODIUM [Suspect]
     Active Substance: RIBOFLAVIN 5^-PHOSPHATE SODIUM
     Indication: Keratoconus
     Dosage: RIGHT EYE
     Route: 047
     Dates: start: 202109, end: 202109

REACTIONS (12)
  - Procedural pain [Recovered/Resolved]
  - Eye pain [Unknown]
  - Emotional distress [Unknown]
  - Eye pruritus [Recovered/Resolved]
  - Eye pain [Unknown]
  - Eye pain [Unknown]
  - Vision blurred [Unknown]
  - Ocular discomfort [Unknown]
  - Lacrimation increased [Unknown]
  - Foreign body sensation in eyes [Unknown]
  - Photophobia [Unknown]
  - Visual impairment [Recovered/Resolved]

NARRATIVE: CASE EVENT DATE: 20210101
